FAERS Safety Report 7622373-9 (Version None)
Quarter: 2011Q3

REPORT INFORMATION
  Report Type: 
  Country: None (occurrence: None)
  Receive Date: 20110711
  Receipt Date: 20110627
  Transmission Date: 20111222
  Serious: Yes (Death)
  Sender: FDA-Public Use
  Company Number: DSA_47061_2011

PATIENT
  Age: 25 Year
  Sex: Female
  Weight: 63.5036 kg

DRUGS (1)
  1. WELLBUTRIN XL [Suspect]
     Indication: PRODUCT USED FOR UNKNOWN INDICATION
     Dosage: 6000 MG 1X, NOT THE PRESCRIBED AMOUNT ORAL
     Route: 048

REACTIONS (5)
  - SUICIDE ATTEMPT [None]
  - BRAIN INJURY [None]
  - OVERDOSE [None]
  - CARDIAC ARREST [None]
  - CONVULSION [None]
